FAERS Safety Report 9422553 (Version 1)
Quarter: 2013Q3

REPORT INFORMATION
  Report Type: Spontaneous
  Country: US (occurrence: None)
  Receive Date: 20130725
  Receipt Date: 20130725
  Transmission Date: 20140515
  Serious: Yes (Hospitalization)
  Sender: FDA-Public Use
  Company Number: None

PATIENT
  Age: 52 Year
  Sex: Male

DRUGS (5)
  1. AMOXICILLIN/CLAVULANATE [Suspect]
     Indication: BRONCHITIS
     Dates: start: 20110303, end: 20110313
  2. CITALOPRAM [Concomitant]
  3. FLUTICASONE W/SALMETEROL [Concomitant]
  4. LISINOPRIL [Concomitant]
  5. ZOLPIDEM [Concomitant]

REACTIONS (5)
  - Nausea [None]
  - Vomiting [None]
  - Diarrhoea [None]
  - Liver injury [None]
  - Hepatotoxicity [None]
